FAERS Safety Report 10982544 (Version 2)
Quarter: 2015Q2

REPORT INFORMATION
  Report Type: Report from Study
  Country: US (occurrence: US)
  Receive Date: 20150403
  Receipt Date: 20150420
  Transmission Date: 20150821
  Serious: Yes (Hospitalization)
  Sender: FDA-Public Use
  Company Number: US-BIOGENIDEC-2015BI042285

PATIENT
  Sex: Female

DRUGS (12)
  1. PRAVASTATIN [Concomitant]
     Active Substance: PRAVASTATIN\PRAVASTATIN SODIUM
  2. AMBIEN [Concomitant]
     Active Substance: ZOLPIDEM TARTRATE
  3. AMPYRA [Concomitant]
     Active Substance: DALFAMPRIDINE
  4. IBUPROFEN. [Concomitant]
     Active Substance: IBUPROFEN
  5. TOPIRAMATE. [Concomitant]
     Active Substance: TOPIRAMATE
  6. DIOVAN [Concomitant]
     Active Substance: VALSARTAN
  7. VITAMIN D [Concomitant]
     Active Substance: CHOLECALCIFEROL
  8. AVONEX [Suspect]
     Active Substance: INTERFERON BETA-1A
     Indication: MULTIPLE SCLEROSIS
     Route: 030
     Dates: start: 20140423
  9. BACLOFEN. [Concomitant]
     Active Substance: BACLOFEN
  10. DICLOFLENCFODCE [Concomitant]
  11. IMIPRAMINE [Concomitant]
     Active Substance: IMIPRAMINE
  12. TRAMADOL [Concomitant]
     Active Substance: TRAMADOL

REACTIONS (1)
  - Hip arthroplasty [Unknown]
